FAERS Safety Report 6586737-7 (Version None)
Quarter: 2010Q1

REPORT INFORMATION
  Report Type: 
  Country: None (occurrence: None)
  Receive Date: 20100217
  Receipt Date: 20090708
  Transmission Date: 20100710
  Serious: No
  Sender: FDA-Public Use
  Company Number: US-ALLERGAN-0909672US

PATIENT
  Sex: Female

DRUGS (12)
  1. BOTOX [Suspect]
     Indication: TORTICOLLIS
     Dosage: UNK, SINGLE
     Route: 030
  2. BOTOX [Suspect]
     Indication: MUSCLE TWITCHING
  3. BOTOX [Suspect]
     Indication: BLEPHAROSPASM
  4. BOTOX [Suspect]
     Indication: SKIN TIGHTNESS
  5. KEPPRA [Concomitant]
     Indication: NEURALGIA
     Dosage: 500 MG, BID
     Route: 048
  6. LAMICTAL [Concomitant]
     Indication: NEURALGIA
     Dosage: 100 MG, BID
     Route: 048
  7. MORPHINE [Concomitant]
     Indication: PAIN
     Dosage: 15 MG, Q6HR
     Route: 048
  8. HYDROMORPHONE HYDROCHLORIDE [Concomitant]
     Indication: PAIN
     Dosage: 2 MG, UNK
     Route: 048
  9. VALIUM [Concomitant]
     Indication: ANXIETY
     Dosage: 5-10 MG, QID
     Route: 048
  10. LEVOTHYROXINE SODIUM [Concomitant]
     Indication: HYPOTHYROIDISM
  11. CLONAZEPAM [Concomitant]
     Indication: ANXIETY
     Dosage: 1 MG, TID
     Route: 048
  12. EFFEXOR [Concomitant]
     Indication: ANXIETY
     Dosage: 300 MG, QAM

REACTIONS (1)
  - THERAPEUTIC RESPONSE DECREASED [None]
